FAERS Safety Report 14909685 (Version 2)
Quarter: 2018Q2

REPORT INFORMATION
  Report Type: Spontaneous
  Country: SI (occurrence: SI)
  Receive Date: 20180517
  Receipt Date: 20180531
  Transmission Date: 20180711
  Serious: Yes (Hospitalization, Other)
  Sender: FDA-Public Use
  Company Number: SI-JNJFOC-20180520124

PATIENT
  Age: 42 Year
  Sex: Male

DRUGS (13)
  1. AMLODIPINE [Concomitant]
     Active Substance: AMLODIPINE BESYLATE
     Route: 065
     Dates: start: 201712
  2. PARACETAMOL [Concomitant]
     Active Substance: ACETAMINOPHEN
     Indication: POST-TRAUMATIC PAIN
     Route: 065
  3. PARACETAMOL [Concomitant]
     Active Substance: ACETAMINOPHEN
     Indication: POST-TRAUMATIC PAIN
     Route: 065
     Dates: start: 20171117
  4. RIVAROXABAN [Suspect]
     Active Substance: RIVAROXABAN
     Indication: DEEP VEIN THROMBOSIS
     Route: 048
     Dates: start: 201712
  5. IBUPROFEN. [Concomitant]
     Active Substance: IBUPROFEN
     Indication: POST-TRAUMATIC PAIN
     Route: 065
     Dates: start: 20171117
  6. PERINDOPRIL ARG/AMLODIPINE FISHER [Concomitant]
     Route: 065
     Dates: start: 2013, end: 20171212
  7. PARACETAMOL [Concomitant]
     Active Substance: ACETAMINOPHEN
     Indication: POST-TRAUMATIC PAIN
     Route: 065
  8. PARACETAMOL [Concomitant]
     Active Substance: ACETAMINOPHEN
     Indication: POST-TRAUMATIC PAIN
     Route: 065
  9. METFORMIN [Concomitant]
     Active Substance: METFORMIN HYDROCHLORIDE
     Route: 065
     Dates: start: 2012, end: 20171212
  10. RIVAROXABAN [Suspect]
     Active Substance: RIVAROXABAN
     Indication: DEEP VEIN THROMBOSIS
     Route: 048
     Dates: start: 20171129, end: 20171211
  11. PARACETAMOL [Concomitant]
     Active Substance: ACETAMINOPHEN
     Indication: POST-TRAUMATIC PAIN
     Route: 065
  12. METFORMIN [Concomitant]
     Active Substance: METFORMIN HYDROCHLORIDE
     Route: 065
     Dates: start: 201712
  13. PARACETAMOL [Concomitant]
     Active Substance: ACETAMINOPHEN
     Indication: POST-TRAUMATIC PAIN
     Route: 065
     Dates: start: 201712

REACTIONS (7)
  - Haematuria [Recovered/Resolved]
  - Renal mass [Recovered/Resolved]
  - Renal haemorrhage [Recovered/Resolved]
  - Pyrexia [Unknown]
  - Spinal pain [Recovered/Resolved]
  - Acute kidney injury [Recovering/Resolving]
  - Renal oncocytoma [Recovered/Resolved]

NARRATIVE: CASE EVENT DATE: 201712
